FAERS Safety Report 9914776 (Version 2)
Quarter: 2014Q1

REPORT INFORMATION
  Report Type: Report from Study
  Country: BR (occurrence: BR)
  Receive Date: 20140220
  Receipt Date: 20140220
  Transmission Date: 20141002
  Serious: Yes (Other)
  Sender: FDA-Public Use
  Company Number: PHHY2014BR001371

PATIENT
  Sex: Male
  Weight: 90 kg

DRUGS (5)
  1. EXELON [Suspect]
     Indication: DEMENTIA ALZHEIMER^S TYPE
     Dosage: 3 DF, (1.5 MG) DAILY
     Route: 048
  2. EXELON [Suspect]
     Dosage: 2 DF, (3 MG) DAILY
     Route: 048
  3. EXELON [Suspect]
     Dosage: 2 DF, (1.5 MG) DAILY
     Route: 048
  4. MEMANTINE [Concomitant]
     Indication: MEMORY IMPAIRMENT
     Dosage: 1 DF, DAILY
     Route: 048
  5. SERTRALINE [Concomitant]
     Dosage: 1 DF, DAILY
     Route: 048

REACTIONS (13)
  - Benign renal neoplasm [Recovered/Resolved]
  - Dysstasia [Not Recovered/Not Resolved]
  - Movement disorder [Not Recovered/Not Resolved]
  - Feeling abnormal [Not Recovered/Not Resolved]
  - Condition aggravated [Not Recovered/Not Resolved]
  - Arthralgia [Not Recovered/Not Resolved]
  - Back pain [Not Recovered/Not Resolved]
  - Pain [Not Recovered/Not Resolved]
  - Irritability [Not Recovered/Not Resolved]
  - Nervousness [Not Recovered/Not Resolved]
  - Gait disturbance [Not Recovered/Not Resolved]
  - Dizziness [Recovering/Resolving]
  - Drug ineffective [Not Recovered/Not Resolved]
